FAERS Safety Report 25682075 (Version 1)
Quarter: 2025Q3

REPORT INFORMATION
  Report Type: Spontaneous
  Country: EU (occurrence: EU)
  Receive Date: 20250814
  Receipt Date: 20250814
  Transmission Date: 20251021
  Serious: Yes (Other)
  Sender: CHEPLAPHARM
  Company Number: None

PATIENT
  Age: 25 Year
  Sex: Female
  Weight: 60 kg

DRUGS (2)
  1. QUETIAPINE [Suspect]
     Active Substance: QUETIAPINE
     Indication: Suspiciousness
     Route: 048
     Dates: start: 20080501
  2. QUETIAPINE [Suspect]
     Active Substance: QUETIAPINE
     Indication: Anxiety
     Route: 048
     Dates: start: 20080501

REACTIONS (7)
  - Hallucination, visual [Recovered/Resolved]
  - Hallucination, auditory [Recovered/Resolved]
  - Withdrawal syndrome [Recovered/Resolved]
  - Pruritus [Recovered/Resolved]
  - Insomnia [Recovering/Resolving]
  - Feeling abnormal [Unknown]
  - Drug ineffective [Unknown]
